FAERS Safety Report 9928120 (Version 3)
Quarter: 2014Q1

REPORT INFORMATION
  Report Type: Spontaneous
  Country: GB (occurrence: GB)
  Receive Date: 20140227
  Receipt Date: 20140317
  Transmission Date: 20141002
  Serious: No
  Sender: FDA-Public Use
  Company Number: GB-ROCHE-1223027

PATIENT
  Sex: Female

DRUGS (1)
  1. HERCEPTIN [Suspect]
     Indication: PRODUCT USED FOR UNKNOWN INDICATION
     Route: 065

REACTIONS (10)
  - Breast pain [Unknown]
  - Paraesthesia [Recovering/Resolving]
  - Musculoskeletal chest pain [Unknown]
  - Erythema [Unknown]
  - Induration [Unknown]
  - Asthenia [Unknown]
  - Hypoaesthesia [Unknown]
  - Chest discomfort [Unknown]
  - Cough [Recovering/Resolving]
  - Abdominal pain [Unknown]
